FAERS Safety Report 18129392 (Version 1)
Quarter: 2020Q3

REPORT INFORMATION
  Report Type: Spontaneous
  Country: US (occurrence: US)
  Receive Date: 20200807
  Receipt Date: 20200807
  Transmission Date: 20201103
  Serious: No
  Sender: FDA-Public Use
  Company Number: None

PATIENT
  Age: 77 Year
  Sex: Male

DRUGS (1)
  1. SPRYCEL [Suspect]
     Active Substance: DASATINIB
     Dosage: ?          OTHER DOSE:80;?
     Route: 048
     Dates: start: 202007

REACTIONS (2)
  - Dyspepsia [None]
  - Decreased appetite [None]

NARRATIVE: CASE EVENT DATE: 20200807
